FAERS Safety Report 11204817 (Version 1)
Quarter: 2015Q2

REPORT INFORMATION
  Report Type: Spontaneous
  Country: US (occurrence: None)
  Receive Date: 20150617
  Receipt Date: 20150617
  Transmission Date: 20150821
  Serious: Yes (Hospitalization)
  Sender: FDA-Public Use
  Company Number: IPC201506-000385

PATIENT
  Age: 59 Year
  Sex: Female

DRUGS (2)
  1. WARFARIN (WARFARIN) (WARFARIN) [Suspect]
     Active Substance: WARFARIN
     Dosage: 12 MG EVERY NIGHT
  2. CLONAZEPAM (CLONAZEPAM) (CLONAZEPAM) [Suspect]
     Active Substance: CLONAZEPAM

REACTIONS (5)
  - Intentional overdose [None]
  - Intentional self-injury [None]
  - Laceration [None]
  - International normalised ratio increased [None]
  - Suicide attempt [None]
